FAERS Safety Report 21558499 (Version 2)
Quarter: 2022Q4

REPORT INFORMATION
  Report Type: Report from Study
  Country: BR (occurrence: BR)
  Receive Date: 20221107
  Receipt Date: 20221230
  Transmission Date: 20230113
  Serious: Yes (Other)
  Sender: FDA-Public Use
  Company Number: BR-NOVOPROD-976811

PATIENT
  Age: 12 Year
  Sex: Male
  Weight: 54 kg

DRUGS (1)
  1. TRESIBA [Suspect]
     Active Substance: INSULIN DEGLUDEC
     Indication: Type 1 diabetes mellitus
     Dosage: 20 IU, QD
     Dates: start: 202204

REACTIONS (3)
  - Blood glucose increased [Not Recovered/Not Resolved]
  - Device defective [Unknown]
  - Device failure [Unknown]

NARRATIVE: CASE EVENT DATE: 20221023
